FAERS Safety Report 6216100-X (Version None)
Quarter: 2009Q2

REPORT INFORMATION
  Report Type: 
  Country: None (occurrence: None)
  Receive Date: 20090605
  Receipt Date: 20090529
  Transmission Date: 20091009
  Serious: Yes (Other)
  Sender: FDA-Public Use
  Company Number: JP-ABBOTT-08P-087-0488340-00

PATIENT
  Sex: Female
  Weight: 56 kg

DRUGS (11)
  1. HUMIRA [Suspect]
     Indication: RHEUMATOID ARTHRITIS
     Route: 058
     Dates: start: 20081009, end: 20090203
  2. METHOTREXATE [Concomitant]
     Indication: RHEUMATOID ARTHRITIS
     Route: 048
     Dates: start: 20080920
  3. LOXOPROFEN SODIUM [Concomitant]
     Indication: RHEUMATOID ARTHRITIS
     Route: 048
     Dates: start: 20080924, end: 20080928
  4. CELECOXIB [Concomitant]
     Indication: RHEUMATOID ARTHRITIS
     Dosage: 200 MG DAILY
     Route: 048
     Dates: start: 20080929
  5. REBAMIPIDE [Concomitant]
     Indication: RHEUMATOID ARTHRITIS
     Dosage: 200 MG DAILY
     Route: 048
     Dates: start: 20080929
  6. REBAMIPIDE [Concomitant]
     Indication: PROPHYLAXIS AGAINST GASTROINTESTINAL ULCER
  7. FOLIC ACID [Concomitant]
     Indication: RHEUMATOID ARTHRITIS
     Route: 048
     Dates: start: 20081001
  8. FOLIC ACID [Concomitant]
     Indication: ADVERSE DRUG REACTION
  9. FOLIC ACID [Concomitant]
     Indication: PROPHYLAXIS
  10. BETAMETHASONE BUTYRATE PROPIONATE [Concomitant]
     Indication: SARCOIDOSIS
     Dosage: QS
     Route: 062
     Dates: start: 20081216
  11. BETAMETHASONE BUTYRATE PROPIONATE [Concomitant]
     Indication: ECZEMA

REACTIONS (2)
  - SARCOIDOSIS [None]
  - UVEITIS [None]
